FAERS Safety Report 5515406-7 (Version None)
Quarter: 2007Q4

REPORT INFORMATION
  Report Type: 
  Country: None (occurrence: None)
  Receive Date: 20071113
  Receipt Date: 20070208
  Transmission Date: 20080405
  Serious: No
  Sender: FDA-Public Use
  Company Number: A0638911A

PATIENT
  Age: 82 Year
  Sex: Male

DRUGS (4)
  1. COREG [Suspect]
     Indication: PERICARDIAL EFFUSION
     Dosage: 6.25MG TWICE PER DAY
     Route: 048
  2. DITROPAN [Concomitant]
  3. LASIX [Concomitant]
  4. POTASSIUM CHLORIDE [Concomitant]

REACTIONS (1)
  - POLLAKIURIA [None]
